FAERS Safety Report 5049379-0 (Version None)
Quarter: 2006Q3

REPORT INFORMATION
  Report Type: 
  Country: None (occurrence: None)
  Receive Date: 20060712
  Receipt Date: 20060525
  Transmission Date: 20061208
  Serious: Yes (Other)
  Sender: FDA-Public Use
  Company Number: US-AMGEN-STX180875

PATIENT
  Sex: Male
  Weight: 93.9 kg

DRUGS (4)
  1. ENBREL [Suspect]
     Indication: PSORIASIS
     Route: 058
     Dates: start: 20050126, end: 20050731
  2. METHOTREXATE [Suspect]
     Dates: start: 19800101, end: 20050731
  3. HYDROCHLOROTHIAZIDE [Concomitant]
     Dates: start: 20040325
  4. OMEPRAZOLE [Concomitant]
     Dates: start: 20060531

REACTIONS (6)
  - CONDITION AGGRAVATED [None]
  - HEPATIC FIBROSIS [None]
  - HEPATITIS C [None]
  - HERPES ZOSTER [None]
  - LIVER DISORDER [None]
  - LIVER FUNCTION TEST ABNORMAL [None]
